FAERS Safety Report 7672374-X (Version None)
Quarter: 2011Q3

REPORT INFORMATION
  Report Type: 
  Country: None (occurrence: None)
  Receive Date: 20110809
  Receipt Date: 20110808
  Transmission Date: 20111222
  Serious: Yes (Hospitalization, Other)
  Sender: FDA-Public Use
  Company Number: US-BRISTOL-MYERS SQUIBB COMPANY-15912967

PATIENT
  Age: 82 Year
  Sex: Male
  Weight: 83 kg

DRUGS (3)
  1. TAXOTERE [Suspect]
     Indication: NON-SMALL CELL LUNG CANCER
     Dosage: LAST DOSE ON 05JUL2011.THERAPY ON HOLD SINCE 12JUL11 20 MG/M2
     Dates: start: 20110607
  2. CARBOPLATIN [Suspect]
     Indication: NON-SMALL CELL LUNG CANCER
     Dosage: LAST DOSE ON 05JUL2011. THERAPY ON HOLD SINCE 12JUL11
     Dates: start: 20110607
  3. ERBITUX [Suspect]
     Indication: NON-SMALL CELL LUNG CANCER
     Dosage: LAST DOSE ON 05JUL2011.THERAPY ON HOLD SINCE 12JUL11
     Dates: start: 20110607

REACTIONS (5)
  - HYPOKALAEMIA [None]
  - PULMONARY EMBOLISM [None]
  - CHOLECYSTITIS [None]
  - SMALL INTESTINAL HAEMORRHAGE [None]
  - DUODENAL ULCER [None]
